FAERS Safety Report 7995864-9 (Version None)
Quarter: 2011Q4

REPORT INFORMATION
  Report Type: 
  Country: None (occurrence: None)
  Receive Date: 20111220
  Receipt Date: 20111219
  Transmission Date: 20120403
  Serious: Yes (Hospitalization)
  Sender: FDA-Public Use
  Company Number: US-AMGEN-USASP2011066890

PATIENT
  Age: 52 Year
  Sex: Male
  Weight: 102.4 kg

DRUGS (9)
  1. RITUXIMAB [Concomitant]
     Indication: IDIOPATHIC THROMBOCYTOPENIC PURPURA
  2. GLIPIZIDE [Concomitant]
  3. NPLATE [Suspect]
     Indication: IDIOPATHIC THROMBOCYTOPENIC PURPURA
     Dosage: 4 MUG/KG, QWK
     Route: 058
     Dates: start: 20100611
  4. CORTICOSTEROIDS [Concomitant]
     Indication: IDIOPATHIC THROMBOCYTOPENIC PURPURA
  5. LOSARTAN POTASSIUM [Concomitant]
  6. LISINOPRIL HYDROCHLOROTHIOAZIDE 1A PHARMA [Concomitant]
  7. IMMUNE GLOBULIN NOS [Concomitant]
     Indication: IDIOPATHIC THROMBOCYTOPENIC PURPURA
  8. METFORMIN HCL [Concomitant]
  9. SIMVASTATIN [Concomitant]

REACTIONS (3)
  - ACUTE MYOCARDIAL INFARCTION [None]
  - HYPERTENSION [None]
  - IN-STENT CORONARY ARTERY RESTENOSIS [None]
